FAERS Safety Report 10633791 (Version 1)
Quarter: 2014Q4

REPORT INFORMATION
  Report Type: Spontaneous
  Country: US (occurrence: None)
  Receive Date: 20141121
  Receipt Date: 20141121
  Transmission Date: 20150529
  Serious: No
  Sender: FDA-Public Use
  Company Number: 163-10004-14081413

PATIENT
  Age: 36 Year
  Sex: Female
  Weight: 87.54 kg

DRUGS (4)
  1. OTEZLA [Suspect]
     Active Substance: APREMILAST
     Indication: PSORIATIC ARTHROPATHY
     Route: 048
     Dates: start: 20140710
  2. VITAMIN D (ERGOCALCIFEROL) [Concomitant]
     Active Substance: ERGOCALCIFEROL
  3. SYNTHROID [Concomitant]
     Active Substance: LEVOTHYROXINE SODIUM
  4. BIOTIN (BIOTIN) [Concomitant]

REACTIONS (3)
  - Muscular weakness [None]
  - Diarrhoea [None]
  - Pain in extremity [None]

NARRATIVE: CASE EVENT DATE: 201407
